FAERS Safety Report 5250944-6 (Version None)
Quarter: 2007Q1

REPORT INFORMATION
  Report Type: 
  Country: None (occurrence: None)
  Receive Date: 20070228
  Receipt Date: 20060731
  Transmission Date: 20070707
  Serious: Yes (Other)
  Sender: FDA-Public Use
  Company Number: US-GLAXOSMITHKLINE-A0614196A

PATIENT
  Sex: Female

DRUGS (3)
  1. LAMICTAL [Suspect]
     Indication: BIPOLAR DISORDER
     Dosage: 100MG AT NIGHT
     Route: 048
     Dates: start: 20060501
  2. RISPERDAL [Suspect]
     Indication: HALLUCINATION
     Route: 048
  3. CYMBALTA [Concomitant]

REACTIONS (2)
  - HALLUCINATION [None]
  - RASH [None]
